FAERS Safety Report 9077017 (Version 1)
Quarter: 2013Q1

REPORT INFORMATION
  Report Type: Spontaneous
  Country: DE (occurrence: DE)
  Receive Date: 20130130
  Receipt Date: 20130130
  Transmission Date: 20140127
  Serious: Yes (Hospitalization, Other)
  Sender: FDA-Public Use
  Company Number: DE-AMGEN-DEUSP2013006365

PATIENT
  Age: 73 Year
  Sex: Female

DRUGS (2)
  1. ENBREL [Suspect]
     Indication: RHEUMATOID ARTHRITIS
     Dosage: 50 MG, WEEKLY
     Dates: start: 20120417, end: 20121215
  2. PREDNISOLON                        /00016201/ [Concomitant]
     Dosage: UNK

REACTIONS (4)
  - Renal function test abnormal [Unknown]
  - Liver function test abnormal [Unknown]
  - Gastric infection [Unknown]
  - Respiratory tract infection [Unknown]
